FAERS Safety Report 12080097 (Version 1)
Quarter: 2016Q1

REPORT INFORMATION
  Report Type: Spontaneous
  Country: FR (occurrence: FR)
  Receive Date: 20160216
  Receipt Date: 20160216
  Transmission Date: 20160526
  Serious: Yes (Life-Threatening, Hospitalization)
  Sender: FDA-Public Use
  Company Number: FR-PFIZER INC-2016083346

PATIENT
  Age: 23 Year
  Sex: Female

DRUGS (7)
  1. LOXAPAC [Suspect]
     Active Substance: LOXAPINE SUCCINATE
     Indication: ANOREXIA NERVOSA
     Dosage: 10 MG, 2X/DAY
     Route: 048
     Dates: start: 20151204
  2. LOXAPAC [Suspect]
     Active Substance: LOXAPINE SUCCINATE
     Indication: BRIEF PSYCHOTIC DISORDER WITH MARKED STRESSORS
  3. ZOLOFT [Suspect]
     Active Substance: SERTRALINE HYDROCHLORIDE
     Indication: ANOREXIA NERVOSA
     Dosage: 100 MG, 1X/DAY
     Route: 048
     Dates: start: 20151204
  4. RULID [Concomitant]
     Active Substance: ROXITHROMYCIN
     Dosage: UNK
  5. LAMICTAL [Suspect]
     Active Substance: LAMOTRIGINE
     Indication: ANOREXIA NERVOSA
     Dosage: 50 MG, 2X/DAY
     Route: 048
     Dates: start: 20151204, end: 20151223
  6. ZOLOFT [Suspect]
     Active Substance: SERTRALINE HYDROCHLORIDE
     Indication: BRIEF PSYCHOTIC DISORDER WITH MARKED STRESSORS
  7. LAMICTAL [Suspect]
     Active Substance: LAMOTRIGINE
     Indication: BRIEF PSYCHOTIC DISORDER WITH MARKED STRESSORS
     Dosage: UNK
     Dates: start: 20160105, end: 20160111

REACTIONS (1)
  - Drug reaction with eosinophilia and systemic symptoms [Recovering/Resolving]

NARRATIVE: CASE EVENT DATE: 20151231
